FAERS Safety Report 9118503 (Version 1)
Quarter: 2013Q1

REPORT INFORMATION
  Report Type: Spontaneous
  Country: US (occurrence: None)
  Receive Date: 20130130
  Receipt Date: 20130130
  Transmission Date: 20140127
  Serious: Yes (Other)
  Sender: FDA-Public Use
  Company Number: US-1196158

PATIENT
  Age: 91 Year
  Sex: Male
  Weight: 74.84 kg

DRUGS (15)
  1. DICLOFENAC SODIUM 0.1 % OPHTHALMIC SOLUTION [Suspect]
     Route: 047
  2. TIMOLOL MALEATE 0.5 % OPHTHALMIC SOLUTION [Suspect]
     Indication: GLAUCOMA
     Route: 047
  3. ZANTAC [Concomitant]
  4. PRENEXA [Concomitant]
  5. COZAAR [Concomitant]
  6. FINASTERIDE [Concomitant]
  7. LIPITOR [Concomitant]
  8. ALOE VERA [Concomitant]
  9. COQ 10 [Concomitant]
  10. LUTEIN [Concomitant]
  11. FISH [Concomitant]
  12. CALCIUM [Concomitant]
  13. MAGNESIUM [Concomitant]
  14. LOSARTAN [Concomitant]
  15. RANEXA [Concomitant]

REACTIONS (3)
  - Hallucination [None]
  - Rash maculo-papular [None]
  - Feeling hot [None]
